FAERS Safety Report 9619598 (Version 1)
Quarter: 2013Q4

REPORT INFORMATION
  Report Type: Spontaneous
  Country: US (occurrence: US)
  Receive Date: 20131014
  Receipt Date: 20131014
  Transmission Date: 20140711
  Serious: Yes (Other)
  Sender: FDA-Public Use
  Company Number: US-BAYER-2013-120936

PATIENT
  Sex: 0

DRUGS (3)
  1. ALEVE CAPLET [Suspect]
     Indication: BACK PAIN
     Dosage: EVERYDAY FOR TWO WEEKS
  2. PEPCID [FAMOTIDINE] [Concomitant]
  3. ZANTAC [Concomitant]

REACTIONS (1)
  - Ulcer [None]
